FAERS Safety Report 5685064-X (Version None)
Quarter: 2008Q1

REPORT INFORMATION
  Report Type: 
  Country: None (occurrence: None)
  Receive Date: 20080328
  Receipt Date: 20000405
  Transmission Date: 20080703
  Serious: Yes (Death, Life-Threatening, Hospitalization, Other)
  Sender: FDA-Public Use
  Company Number: JP-ROCHE-233444

PATIENT
  Age: 70 Year
  Sex: Male

DRUGS (12)
  1. PANALDINE [Suspect]
     Indication: TRANSIENT ISCHAEMIC ATTACK
     Route: 048
     Dates: start: 19990812, end: 19991115
  2. PANALDINE [Suspect]
     Route: 048
     Dates: start: 19991128, end: 19991228
  3. PERSANTINE [Concomitant]
     Route: 048
     Dates: start: 19980511
  4. GLYCYRON [Concomitant]
     Route: 048
     Dates: start: 19980511
  5. NORVASC [Concomitant]
     Indication: HYPERTENSION
     Route: 048
     Dates: start: 19981030
  6. MYSOLINE [Concomitant]
     Route: 048
     Dates: start: 19990208
  7. INDOMETHACIN [Concomitant]
     Indication: HYPERTENSION
     Dosage: TRADENAME REPORTED AS INTEDARU
     Route: 048
     Dates: start: 19990208
  8. RHYTHMY [Concomitant]
     Indication: INSOMNIA
     Route: 048
     Dates: start: 19990315
  9. NU-LOTAN [Concomitant]
     Indication: HYPERTENSION
     Route: 048
     Dates: start: 19990412
  10. LASIX [Concomitant]
     Indication: HYPERTENSION
     Route: 048
     Dates: start: 19990510
  11. KINEDAK [Concomitant]
     Route: 048
     Dates: start: 19990510
  12. BUFFERIN [Concomitant]
     Indication: TRANSIENT ISCHAEMIC ATTACK
     Route: 048
     Dates: start: 19990812

REACTIONS (18)
  - BLOOD BILIRUBIN INCREASED [None]
  - CEREBRAL ARTERIOSCLEROSIS [None]
  - CHOLESTASIS [None]
  - COMA HEPATIC [None]
  - DEMENTIA [None]
  - DEPRESSED LEVEL OF CONSCIOUSNESS [None]
  - HEADACHE [None]
  - HEPATIC ENZYME INCREASED [None]
  - HEPATIC FAILURE [None]
  - HEPATITIS [None]
  - HEPATOCELLULAR INJURY [None]
  - HYPOKINESIA [None]
  - LETHARGY [None]
  - LOSS OF CONSCIOUSNESS [None]
  - MALAISE [None]
  - PSYCHIATRIC SYMPTOM [None]
  - PYREXIA [None]
  - URINARY INCONTINENCE [None]
